FAERS Safety Report 6713929-6 (Version None)
Quarter: 2010Q2

REPORT INFORMATION
  Report Type: 
  Country: None (occurrence: None)
  Receive Date: 20100506
  Receipt Date: 20100504
  Transmission Date: 20101027
  Serious: Yes (Other)
  Sender: FDA-Public Use
  Company Number: CHPA2010US07819

PATIENT
  Age: 71 Year
  Sex: Female
  Weight: 54.422 kg

DRUGS (6)
  1. BENEFIBER W/ WHEAT DEXTRIN (NCH) [Suspect]
     Indication: NUTRITIONAL SUPPORT
     Dosage: 3 TSP, QD
     Route: 048
  2. SYNTHROID [Concomitant]
     Dosage: 1 DF, QD
     Route: 048
  3. CYMBALTA [Concomitant]
     Dosage: 1 DF, QD
     Route: 048
  4. ALPRAZOLAM [Concomitant]
     Indication: ANXIETY
     Dosage: .5 DF, QD
  5. HUMULIN R [Concomitant]
     Indication: DIABETES MELLITUS
     Dosage: UNK
  6. HUMULIN MIX 30/70 [Concomitant]
     Indication: DIABETES MELLITUS
     Dosage: UNK, BID
     Route: 058

REACTIONS (4)
  - BLOOD GLUCOSE DECREASED [None]
  - BLOOD GLUCOSE INCREASED [None]
  - INCORRECT DOSE ADMINISTERED [None]
  - WEIGHT DECREASED [None]
